FAERS Safety Report 25791527 (Version 1)
Quarter: 2025Q3

REPORT INFORMATION
  Report Type: Spontaneous
  Country: GB (occurrence: GB)
  Receive Date: 20250911
  Receipt Date: 20250911
  Transmission Date: 20251021
  Serious: Yes (Other)
  Sender: TORRENT PHARMA INC.
  Company Number: None

PATIENT
  Sex: Female

DRUGS (1)
  1. APIXABAN [Suspect]
     Active Substance: APIXABAN
     Indication: Atrial fibrillation
     Route: 065
     Dates: start: 202407

REACTIONS (11)
  - Hallucination [Recovering/Resolving]
  - Psychotic disorder [Recovered/Resolved]
  - Confusional state [Recovering/Resolving]
  - Mixed dementia [Recovering/Resolving]
  - Unresponsive to stimuli [Recovering/Resolving]
  - Accidental overdose [Unknown]
  - Product dose omission issue [Unknown]
  - Condition aggravated [Recovering/Resolving]
  - Hypoacusis [Recovering/Resolving]
  - Dementia Alzheimer^s type [Recovering/Resolving]
  - Vascular dementia [Recovering/Resolving]

NARRATIVE: CASE EVENT DATE: 20250301
